FAERS Safety Report 8842211 (Version 1)
Quarter: 2012Q4

REPORT INFORMATION
  Report Type: Spontaneous
  Country: US (occurrence: None)
  Receive Date: 20121015
  Receipt Date: 20121015
  Transmission Date: 20130627
  Serious: No
  Sender: FDA-Public Use
  Company Number: None

PATIENT
  Age: 65 Year
  Sex: Male
  Weight: 97.7 kg

DRUGS (1)
  1. DABIGATRAN [Suspect]
     Indication: ATRIAL FIBRILLATION
     Route: 048
     Dates: start: 20111104, end: 20111222

REACTIONS (7)
  - Drug intolerance [None]
  - Dysphagia [None]
  - Chest discomfort [None]
  - Dyspepsia [None]
  - Abdominal pain [None]
  - Gastrooesophageal reflux disease [None]
  - Abdominal discomfort [None]
